FAERS Safety Report 5340439-3 (Version None)
Quarter: 2007Q2

REPORT INFORMATION
  Report Type: 
  Country: None (occurrence: None)
  Receive Date: 20070531
  Receipt Date: 20070523
  Transmission Date: 20071010
  Serious: Yes (Hospitalization)
  Sender: FDA-Public Use
  Company Number: US-JNJFOC-20070506112

PATIENT
  Sex: Female
  Weight: 74.84 kg

DRUGS (8)
  1. FENTANYL TRANSDERMAL SYSTEM [Suspect]
     Indication: PAIN
     Route: 062
  2. ZANAFLEX [Concomitant]
     Indication: MUSCLE RELAXANT THERAPY
     Route: 048
  3. SOMA [Concomitant]
     Indication: MUSCLE RELAXANT THERAPY
     Route: 048
  4. TRAZODONE HCL [Concomitant]
     Route: 065
  5. HYDROCODONE BITARTRATE [Concomitant]
     Indication: PAIN
     Route: 048
  6. CYMBALTA [Concomitant]
     Indication: DEPRESSION
     Route: 048
  7. VIVELLE-DOT [Concomitant]
     Indication: HORMONE REPLACEMENT THERAPY
     Route: 062
  8. ALDACTONE [Concomitant]
     Route: 048

REACTIONS (2)
  - HOT FLUSH [None]
  - TRANSIENT ISCHAEMIC ATTACK [None]
